FAERS Safety Report 9004758 (Version 1)
Quarter: 2013Q1

REPORT INFORMATION
  Report Type: Spontaneous
  Country: US (occurrence: US)
  Receive Date: 20130109
  Receipt Date: 20130109
  Transmission Date: 20140127
  Serious: No
  Sender: FDA-Public Use
  Company Number: US-PFIZER INC-2013007686

PATIENT
  Sex: 0

DRUGS (2)
  1. GABAPENTIN [Suspect]
     Dosage: UNK
  2. NAPROSYN [Interacting]
     Dosage: UNK

REACTIONS (3)
  - Drug interaction [Unknown]
  - Swelling face [Unknown]
  - Butterfly rash [Unknown]
